FAERS Safety Report 15456497 (Version 2)
Quarter: 2018Q4

REPORT INFORMATION
  Report Type: Spontaneous
  Country: JP (occurrence: JP)
  Receive Date: 20181002
  Receipt Date: 20181023
  Transmission Date: 20190204
  Serious: Yes (Hospitalization)
  Sender: FDA-Public Use
  Company Number: JP-ELI_LILLY_AND_COMPANY-JP201809012192

PATIENT
  Age: 66 Year
  Sex: Male

DRUGS (4)
  1. PRASUGREL HYDROCHLORIDE [Suspect]
     Active Substance: PRASUGREL HYDROCHLORIDE
     Indication: ANGINA UNSTABLE
     Dosage: 3.75 MG, DAILY
     Route: 048
     Dates: start: 20180313
  2. HEPARIN [Concomitant]
     Active Substance: HEPARIN SODIUM
     Indication: THROMBECTOMY
     Dosage: 19200 IU, UNKNOWN
     Route: 041
     Dates: start: 20180313, end: 20180320
  3. HEPARIN [Concomitant]
     Active Substance: HEPARIN SODIUM
     Indication: ANGINA UNSTABLE
  4. ASPIRIN                            /00002701/ [Suspect]
     Active Substance: ASPIRIN
     Indication: ANTIPLATELET THERAPY
     Dosage: 100 MG, DAILY
     Route: 048
     Dates: start: 20180312, end: 20180320

REACTIONS (3)
  - Off label use [Unknown]
  - Muscle haemorrhage [Recovering/Resolving]
  - Haemorrhagic anaemia [Recovered/Resolved]

NARRATIVE: CASE EVENT DATE: 20180319
